FAERS Safety Report 7121108-6 (Version None)
Quarter: 2010Q4

REPORT INFORMATION
  Report Type: 
  Country: None (occurrence: None)
  Receive Date: 20101124
  Receipt Date: 20100415
  Transmission Date: 20110411
  Serious: No
  Sender: FDA-Public Use
  Company Number: US-PFIZER INC-2010048572

PATIENT
  Sex: Male

DRUGS (5)
  1. TIKOSYN [Suspect]
     Indication: HEART RATE ABNORMAL
     Dosage: 500 MCG, 2X/DAY
     Route: 048
     Dates: start: 20100408
  2. WARFARIN SODIUM [Concomitant]
     Dosage: UNK
  3. ACETYLSALICYLIC ACID [Concomitant]
     Dosage: UNK
  4. LEXAPRO [Concomitant]
     Dosage: UNK
  5. RANITIDINE [Concomitant]
     Dosage: UNK

REACTIONS (2)
  - HEART RATE ABNORMAL [None]
  - HEART RATE INCREASED [None]
